FAERS Safety Report 13594403 (Version 1)
Quarter: 2017Q2

REPORT INFORMATION
  Report Type: Spontaneous
  Country: US (occurrence: US)
  Receive Date: 20170530
  Receipt Date: 20170530
  Transmission Date: 20170830
  Serious: Yes (Other)
  Sender: FDA-Public Use
  Company Number: US-ZYDUS-015285

PATIENT
  Age: 67 Year
  Sex: Male

DRUGS (3)
  1. CLOPIDOGREL [Suspect]
     Active Substance: CLOPIDOGREL BISULFATE
     Indication: PRODUCT USED FOR UNKNOWN INDICATION
     Route: 065
  2. ACETYLSALICYLIC ACID [Suspect]
     Active Substance: ASPIRIN
     Indication: PRODUCT USED FOR UNKNOWN INDICATION
     Route: 065
  3. HEPARIN [Suspect]
     Active Substance: HEPARIN SODIUM
     Indication: ATRIAL FLUTTER
     Route: 065

REACTIONS (9)
  - Tenderness [Unknown]
  - Retroperitoneal haemorrhage [Unknown]
  - Tachycardia [Unknown]
  - Haemoglobin decreased [Unknown]
  - Mental status changes [Unknown]
  - Muscle haemorrhage [Unknown]
  - Hypotension [Unknown]
  - Back pain [Unknown]
  - Abdominal pain [Unknown]
